FAERS Safety Report 10826260 (Version 1)
Quarter: 2015Q1

REPORT INFORMATION
  Report Type: Spontaneous
  Country: BE (occurrence: None)
  Receive Date: 20150213
  Receipt Date: 20150213
  Transmission Date: 20150721
  Serious: Yes (Hospitalization)
  Sender: FDA-Public Use
  Company Number: 2014BI137803

PATIENT
  Age: 49 Year
  Sex: Female

DRUGS (4)
  1. TYSABRI [Suspect]
     Active Substance: NATALIZUMAB
     Indication: RELAPSING-REMITTING MULTIPLE SCLEROSIS
     Route: 042
     Dates: start: 20100726
  2. DEPAKINE CHRONO [Concomitant]
     Active Substance: VALPROATE SODIUM
  3. LYRICA [Concomitant]
     Active Substance: PREGABALIN
  4. CAMCOLIT [Concomitant]

REACTIONS (2)
  - Hypomania [None]
  - Mania [None]

NARRATIVE: CASE EVENT DATE: 20140814
